FAERS Safety Report 8439379-2 (Version None)
Quarter: 2012Q2

REPORT INFORMATION
  Report Type: 
  Country: None (occurrence: None)
  Receive Date: 20120615
  Receipt Date: 20120613
  Transmission Date: 20120825
  Serious: Yes (Hospitalization)
  Sender: FDA-Public Use
  Company Number: PHHO2010FR07050

PATIENT
  Sex: Female

DRUGS (2)
  1. MYCOPHENOLIC ACID [Suspect]
     Indication: RENAL TRANSPLANT
     Dosage: UNK
     Route: 048
  2. NEORAL [Suspect]
     Indication: RENAL TRANSPLANT
     Dosage: 125 MG, QD
     Route: 048
     Dates: start: 20091227, end: 20101125

REACTIONS (1)
  - APHTHOUS STOMATITIS [None]
